FAERS Safety Report 18844831 (Version 2)
Quarter: 2021Q1

REPORT INFORMATION
  Report Type: Spontaneous
  Country: JP (occurrence: JP)
  Receive Date: 20210203
  Receipt Date: 20210330
  Transmission Date: 20210419
  Serious: Yes (Death, Hospitalization, Other)
  Sender: FDA-Public Use
  Company Number: JP-EXELIXIS-CABO-20033237

PATIENT

DRUGS (1)
  1. CABOMETYX [Suspect]
     Active Substance: CABOZANTINIB S-MALATE
     Indication: RENAL CELL CARCINOMA
     Dosage: 60 MG, QD
     Route: 048
     Dates: start: 20200820, end: 20201221

REACTIONS (4)
  - Renal cell carcinoma [Unknown]
  - Death [Fatal]
  - Disease progression [Unknown]
  - Adverse event [Unknown]

NARRATIVE: CASE EVENT DATE: 20201221
